FAERS Safety Report 13547901 (Version 1)
Quarter: 2017Q2

REPORT INFORMATION
  Report Type: Spontaneous
  Country: CZ (occurrence: CZ)
  Receive Date: 20170516
  Receipt Date: 20170516
  Transmission Date: 20170830
  Serious: Yes (Other)
  Sender: FDA-Public Use
  Company Number: CZ-ROCHE-1930736

PATIENT
  Age: 57 Year
  Sex: Male

DRUGS (2)
  1. COMBAIR [Concomitant]
     Indication: IDIOPATHIC PULMONARY FIBROSIS
     Route: 055
     Dates: start: 2016
  2. ESBRIET [Suspect]
     Active Substance: PIRFENIDONE
     Indication: IDIOPATHIC PULMONARY FIBROSIS
     Route: 048
     Dates: start: 20161214, end: 20170327

REACTIONS (1)
  - Solar dermatitis [Recovered/Resolved]

NARRATIVE: CASE EVENT DATE: 20170320
